FAERS Safety Report 12968499 (Version 1)
Quarter: 2016Q4

REPORT INFORMATION
  Report Type: Spontaneous
  Country: US (occurrence: US)
  Receive Date: 20161120
  Receipt Date: 20161120
  Transmission Date: 20170207
  Serious: No
  Sender: FDA-Public Use
  Company Number: None

PATIENT
  Sex: Male

DRUGS (1)
  1. DOFETILIDE 250 MCG MAYNE PHARMA [Suspect]
     Active Substance: DOFETILIDE
     Route: 048
     Dates: start: 20120816

REACTIONS (2)
  - Arrhythmia [None]
  - Product substitution issue [None]
